FAERS Safety Report 4774094-8 (Version None)
Quarter: 2005Q3

REPORT INFORMATION
  Report Type: 
  Country: None (occurrence: None)
  Receive Date: 20050919
  Receipt Date: 20050909
  Transmission Date: 20060218
  Serious: Yes (Death, Hospitalization)
  Sender: FDA-Public Use
  Company Number: 2005-07-1674

PATIENT
  Age: 74 Year
  Sex: Female
  Weight: 45 kg

DRUGS (4)
  1. PEG-INTRON [Suspect]
     Indication: HEPATITIS C
     Dosage: 40 MCG QW SUBCUTANEOUS
     Route: 058
     Dates: start: 20050620, end: 20050711
  2. REBETOL [Suspect]
     Indication: HEPATITIS C
     Dosage: 400 MG ORAL
     Route: 048
     Dates: start: 20050620, end: 20050715
  3. NU-LOTAN (LOSARTAN POTASSIUM) TABLETS [Concomitant]
  4. RYTHMODAN TABLETS [Concomitant]

REACTIONS (2)
  - GASTROENTERITIS VIBRIO [None]
  - GENERAL PHYSICAL HEALTH DETERIORATION [None]
